FAERS Safety Report 5371206-2 (Version None)
Quarter: 2007Q2

REPORT INFORMATION
  Report Type: 
  Country: None (occurrence: None)
  Receive Date: 20070615
  Receipt Date: 20070226
  Transmission Date: 20071010
  Serious: Yes (Other)
  Sender: FDA-Public Use
  Company Number: 200710766US

PATIENT
  Age: 67 Year
  Sex: Female

DRUGS (10)
  1. LANTUS [Suspect]
     Indication: DIABETES MELLITUS NON-INSULIN-DEPENDENT
     Dosage: 15 U QD
     Dates: start: 20041001
  2. LANTUS [Suspect]
     Indication: DIABETES MELLITUS NON-INSULIN-DEPENDENT
     Dosage: 35 U QD
     Dates: end: 20061001
  3. LANTUS [Suspect]
     Indication: DIABETES MELLITUS NON-INSULIN-DEPENDENT
     Dosage: 50 U QD
     Dates: start: 20061001, end: 20070125
  4. OPTICLIK [Suspect]
     Indication: DIABETES MELLITUS NON-INSULIN-DEPENDENT
     Dates: start: 20041001, end: 20070125
  5. AVANDIA [Concomitant]
  6. ASPIRIN [Concomitant]
  7. METFORMIN HCL [Concomitant]
  8. LISINOPRIL [Concomitant]
  9. PRAVASTATIN [Concomitant]
  10. NAPROXEN [Concomitant]

REACTIONS (5)
  - DEPRESSED LEVEL OF CONSCIOUSNESS [None]
  - EXPIRED DRUG ADMINISTERED [None]
  - HYPERHIDROSIS [None]
  - HYPOGLYCAEMIC UNCONSCIOUSNESS [None]
  - SOMNOLENCE [None]
